FAERS Safety Report 6477637-1 (Version None)
Quarter: 2009Q4

REPORT INFORMATION
  Report Type: 
  Country: None (occurrence: None)
  Receive Date: 20091204
  Receipt Date: 20091204
  Transmission Date: 20100525
  Serious: Yes (Hospitalization)
  Sender: FDA-Public Use
  Company Number: None

PATIENT
  Sex: Male
  Weight: 73 kg

DRUGS (1)
  1. SEPTRA DS [Suspect]
     Indication: TOXOPLASMOSIS
     Dosage: 2 TABLET TWICE DAILY PO 37
     Route: 048
     Dates: start: 20091014, end: 20091119

REACTIONS (4)
  - EXFOLIATIVE RASH [None]
  - HEPATIC ENZYME INCREASED [None]
  - PRURITUS [None]
  - RASH GENERALISED [None]
